FAERS Safety Report 12400273 (Version 1)
Quarter: 2016Q2

REPORT INFORMATION
  Report Type: Spontaneous
  Country: US (occurrence: None)
  Receive Date: 20160524
  Receipt Date: 20160524
  Transmission Date: 20160815
  Serious: No
  Sender: FDA-Public Use
  Company Number: None

PATIENT
  Age: 19 Year
  Sex: Male
  Weight: 60.78 kg

DRUGS (4)
  1. DIPENTUM [Suspect]
     Active Substance: OLSALAZINE SODIUM
     Indication: COLITIS ULCERATIVE
     Route: 048
     Dates: start: 20160510, end: 20160515
  2. TURMERIC [Concomitant]
     Active Substance: TURMERIC
  3. GENERIC OF CENTRUM MULTI-VITAMIN [Concomitant]
  4. BUDESONIDE. [Concomitant]
     Active Substance: BUDESONIDE

REACTIONS (3)
  - Pain [None]
  - Pollakiuria [None]
  - Blood urine present [None]

NARRATIVE: CASE EVENT DATE: 20160515
